FAERS Safety Report 19701412 (Version 16)
Quarter: 2023Q2

REPORT INFORMATION
  Report Type: Spontaneous
  Country: JP (occurrence: JP)
  Receive Date: 20210814
  Receipt Date: 20230524
  Transmission Date: 20230721
  Serious: Yes (Hospitalization, Other)
  Sender: FDA-Public Use
  Company Number: JP-UNITED THERAPEUTICS-UNT-2021-006834

PATIENT
  Age: 32 Year
  Sex: Female
  Weight: 58 kg

DRUGS (27)
  1. REMODULIN [Suspect]
     Active Substance: TREPROSTINIL
     Indication: Pulmonary arterial hypertension
     Dosage: UNK, CONTINUING (AT A DOSING RATE OF MORE THAN 1 NG/KG/MIN) )
     Route: 041
     Dates: start: 20210308, end: 202103
  2. REMODULIN [Suspect]
     Active Substance: TREPROSTINIL
     Dosage: 0.008 ?G/KG, CONTINUING
     Route: 041
     Dates: start: 20210316, end: 202103
  3. REMODULIN [Suspect]
     Active Substance: TREPROSTINIL
     Dosage: 0.01 ?G/KG, CONTINUING
     Route: 041
     Dates: start: 20210322, end: 2021
  4. REMODULIN [Suspect]
     Active Substance: TREPROSTINIL
     Dosage: 0.03 ?G/KG, CONTINUING
     Route: 041
     Dates: start: 20210506, end: 202105
  5. REMODULIN [Suspect]
     Active Substance: TREPROSTINIL
     Indication: Pulmonary arterial hypertension
     Dosage: 0.030 ?G/KG, CONTINUING
     Route: 058
     Dates: start: 20210519, end: 2021
  6. REMODULIN [Suspect]
     Active Substance: TREPROSTINIL
     Dosage: 0.039 ?G/KG, CONTINUING
     Route: 058
     Dates: start: 20210707
  7. REMODULIN [Suspect]
     Active Substance: TREPROSTINIL
     Dosage: 0.0432 ?G/KG, CONTINUING
     Route: 058
     Dates: start: 2022
  8. REMODULIN [Suspect]
     Active Substance: TREPROSTINIL
     Dosage: 0.045 ?G/KG, CONTINUING
     Route: 058
  9. REMODULIN [Suspect]
     Active Substance: TREPROSTINIL
     Dosage: 0.030 ?G/KG, CONTINUING
     Route: 058
  10. REMODULIN [Suspect]
     Active Substance: TREPROSTINIL
     Dosage: 0.025 ?G/KG, CONTINUING
     Route: 058
  11. CYMBALTA [Suspect]
     Active Substance: DULOXETINE HYDROCHLORIDE
     Indication: Pain
     Dosage: UNK
     Route: 065
  12. SODIUM FERROUS CITRATE [Suspect]
     Active Substance: SODIUM FERROUS CITRATE
     Indication: Anaemia
     Dosage: UNK
     Route: 048
     Dates: start: 202108, end: 202108
  13. PREDONINE [Concomitant]
     Active Substance: PREDNISOLONE
     Indication: Systemic lupus erythematosus
     Dosage: UNK
     Route: 065
  14. DOBUTAMINE [Concomitant]
     Active Substance: DOBUTAMINE HYDROCHLORIDE
     Indication: Product used for unknown indication
     Dosage: (5.0 GAMMA)
     Route: 065
     Dates: start: 20210226
  15. BERAPROST SODIUM [Concomitant]
     Active Substance: BERAPROST SODIUM
     Indication: Product used for unknown indication
     Dosage: 60 ?G, QD
     Route: 065
     Dates: start: 20210226
  16. BERAPROST SODIUM [Concomitant]
     Active Substance: BERAPROST SODIUM
     Dosage: 120 ?G, QD
     Route: 065
     Dates: start: 20210707
  17. BERAPROST SODIUM [Concomitant]
     Active Substance: BERAPROST SODIUM
     Dosage: 120 ?G, QD
     Route: 065
     Dates: start: 2022
  18. RIOCIGUAT [Concomitant]
     Active Substance: RIOCIGUAT
     Indication: Pulmonary arterial hypertension
     Dosage: UNK (UP TO 4.5 MG)
     Route: 048
     Dates: start: 20210227
  19. RIOCIGUAT [Concomitant]
     Active Substance: RIOCIGUAT
     Dosage: 6 MG, QD
     Route: 048
     Dates: start: 20210707
  20. RIOCIGUAT [Concomitant]
     Active Substance: RIOCIGUAT
     Dosage: 6 MG, QD
     Route: 048
     Dates: start: 2022
  21. TADALAFIL [Concomitant]
     Active Substance: TADALAFIL
     Indication: Product used for unknown indication
     Dosage: 40 MG, QD
     Route: 065
     Dates: start: 20210227
  22. MACITENTAN [Concomitant]
     Active Substance: MACITENTAN
     Indication: Pulmonary arterial hypertension
     Dosage: 10 MG, QD
     Route: 048
     Dates: start: 20210227
  23. MACITENTAN [Concomitant]
     Active Substance: MACITENTAN
     Dosage: 10 MG, QD
     Route: 048
     Dates: start: 20210707
  24. MACITENTAN [Concomitant]
     Active Substance: MACITENTAN
     Dosage: 10 MG, QD
     Route: 048
     Dates: start: 2022
  25. SELEXIPAG [Concomitant]
     Active Substance: SELEXIPAG
     Indication: Pulmonary arterial hypertension
     Dosage: 0.4 MG, QD
     Route: 065
     Dates: start: 2022, end: 2022
  26. SELEXIPAG [Concomitant]
     Active Substance: SELEXIPAG
     Dosage: 2.4 MG, QD
     Route: 065
     Dates: start: 2022
  27. SELEXIPAG [Concomitant]
     Active Substance: SELEXIPAG
     Dosage: 3.2 MG, QD
     Route: 065
     Dates: start: 2022

REACTIONS (25)
  - Iron deficiency anaemia [Recovering/Resolving]
  - Nausea [Recovering/Resolving]
  - Pain in extremity [Unknown]
  - Amenorrhoea [Unknown]
  - Injection site pain [Recovering/Resolving]
  - Injection site erythema [Recovering/Resolving]
  - Injection site vesicles [Unknown]
  - Herpes zoster [Unknown]
  - Injection site induration [Unknown]
  - Injection site urticaria [Unknown]
  - Malaise [Unknown]
  - Dizziness [Unknown]
  - Axillary pain [Unknown]
  - Chest pain [Unknown]
  - Decreased appetite [Unknown]
  - Injection site discharge [Unknown]
  - Injection site discharge [Unknown]
  - Eye discharge [Recovering/Resolving]
  - Peripheral venous disease [Unknown]
  - Nausea [Recovering/Resolving]
  - Vomiting [Recovering/Resolving]
  - Decreased appetite [Unknown]
  - Injection site haemorrhage [Unknown]
  - Injection site deformation [Recovering/Resolving]
  - Blood pressure decreased [Unknown]

NARRATIVE: CASE EVENT DATE: 20210101
